FAERS Safety Report 12454294 (Version 1)
Quarter: 2016Q2

REPORT INFORMATION
  Report Type: Other
  Country: JP (occurrence: JP)
  Receive Date: 20160610
  Receipt Date: 20160610
  Transmission Date: 20160815
  Serious: Yes (Other)
  Sender: FDA-Public Use
  Company Number: JP-ACTELION-A-CH2016-137317

PATIENT
  Age: 63 Year
  Sex: Female

DRUGS (3)
  1. BERAPROST [Concomitant]
     Active Substance: BERAPROST
  2. TRACLEER [Suspect]
     Active Substance: BOSENTAN
     Indication: PULMONARY ARTERIAL HYPERTENSION
     Dosage: UNK
     Route: 048
     Dates: end: 201403
  3. TADALAFIL [Concomitant]
     Active Substance: TADALAFIL
     Dosage: UNK
     Dates: end: 201311

REACTIONS (3)
  - Dyspnoea exertional [Recovering/Resolving]
  - Left ventricular failure [Recovering/Resolving]
  - Pulmonary arterial wedge pressure increased [Recovering/Resolving]
